FAERS Safety Report 9932046 (Version 1)
Quarter: 2014Q1

REPORT INFORMATION
  Report Type: Spontaneous
  Country: US (occurrence: US)
  Receive Date: 20140228
  Receipt Date: 20140228
  Transmission Date: 20141002
  Serious: No
  Sender: FDA-Public Use
  Company Number: US-ABBVIE-13P-163-1142796-00

PATIENT
  Age: 78 Year
  Sex: Male
  Weight: 90.8 kg

DRUGS (10)
  1. ANDROGEL [Suspect]
     Indication: BLOOD TESTOSTERONE DECREASED
     Dates: start: 20130904
  2. XANAX [Concomitant]
     Indication: PRODUCT USED FOR UNKNOWN INDICATION
  3. WELLBUTRIN [Concomitant]
     Indication: ANTIDEPRESSANT THERAPY
  4. LISINOPRIL [Concomitant]
     Indication: HYPERTENSION
  5. FAMOTADINE [Concomitant]
     Indication: GASTROOESOPHAGEAL REFLUX DISEASE
  6. FLOMAX [Concomitant]
     Indication: URINARY TRACT DISORDER
  7. LAMICTAL [Concomitant]
     Indication: AFFECTIVE DISORDER
  8. NORTRIPTYLINE [Concomitant]
     Indication: MIGRAINE
  9. SINEMET [Concomitant]
     Indication: PARKINSON^S DISEASE
  10. OMEPRAZOLE [Concomitant]
     Indication: PROPHYLAXIS AGAINST GASTROINTESTINAL ULCER

REACTIONS (3)
  - Fatigue [Not Recovered/Not Resolved]
  - Nausea [Not Recovered/Not Resolved]
  - Impatience [Not Recovered/Not Resolved]
